FAERS Safety Report 5136110-3 (Version None)
Quarter: 2006Q4

REPORT INFORMATION
  Report Type: 
  Country: None (occurrence: None)
  Receive Date: 20061027
  Receipt Date: 20060807
  Transmission Date: 20070319
  Serious: Yes (Disabling)
  Sender: FDA-Public Use
  Company Number: GBWYE582608AUG06

PATIENT
  Sex: Male
  Weight: 127.9 kg

DRUGS (9)
  1. ENBREL [Suspect]
     Indication: DRUG USE FOR UNKNOWN INDICATION
     Route: 058
  2. ENBREL [Suspect]
     Route: 058
     Dates: start: 20030601
  3. ENBREL [Suspect]
     Route: 058
  4. ACRIVASTINE [Concomitant]
     Dosage: UNKNOWN
     Route: 065
  5. SIMVASTATIN [Concomitant]
     Dosage: 40MG AT NIGHT, FREQUENCY UNKNOWN
     Route: 048
  6. CODEINE PHOSPHATE [Concomitant]
     Dosage: 30/500 AS NEEDED
     Route: 048
  7. CETIRIZINE HCL [Concomitant]
     Dosage: UNKNOWN
     Route: 065
  8. AMLODIPINE [Concomitant]
     Route: 048
  9. ACETAMINOPHEN [Concomitant]
     Route: 048

REACTIONS (4)
  - BLISTER [None]
  - INJECTION SITE REACTION [None]
  - OEDEMA PERIPHERAL [None]
  - RASH [None]
